FAERS Safety Report 25015358 (Version 1)
Quarter: 2025Q1

REPORT INFORMATION
  Report Type: Spontaneous
  Country: CZ (occurrence: CZ)
  Receive Date: 20250226
  Receipt Date: 20250226
  Transmission Date: 20250409
  Serious: Yes (Hospitalization, Other)
  Sender: MSN LABORATORIES PRIVATE LIMITED
  Company Number: CZ-MSNLABS-2024MSNLIT00991

PATIENT

DRUGS (4)
  1. PREGABALIN [Suspect]
     Active Substance: PREGABALIN
     Indication: Generalised anxiety disorder
     Dosage: 1 MORNING DOSE, SNIFFING,ARBITRARILY INCREASED THE DOSE
     Route: 045
     Dates: start: 202301
  2. PREGABALIN [Suspect]
     Active Substance: PREGABALIN
     Indication: Personality disorder
     Dosage: REDUCE THE SUPRAMAXIMAL DOSES - REDUCTION CPS 2-2-1 SCHEDULE
     Route: 065
  3. PREGABALIN [Suspect]
     Active Substance: PREGABALIN
     Dosage: 600 MILLIGRAM, BID, REDUCED TO 600 MG WITHIN 14 DAYS.
     Route: 065
     Dates: start: 202301
  4. PREGABALIN [Suspect]
     Active Substance: PREGABALIN
     Dosage: CURRENTLY TAKING 1,500 MG PER DAY
     Route: 065

REACTIONS (12)
  - Aggression [Unknown]
  - Tension [Not Recovered/Not Resolved]
  - Conjunctival hyperaemia [Not Recovered/Not Resolved]
  - Hyperhidrosis [Not Recovered/Not Resolved]
  - Insomnia [Not Recovered/Not Resolved]
  - Anxiety [Not Recovered/Not Resolved]
  - Intentional overdose [Unknown]
  - Withdrawal syndrome [Recovering/Resolving]
  - Drug dependence [Not Recovered/Not Resolved]
  - Psychiatric decompensation [Recovered/Resolved]
  - Behaviour disorder [Unknown]
  - Intentional product misuse [Unknown]
